FAERS Safety Report 14447108 (Version 1)
Quarter: 2018Q1

REPORT INFORMATION
  Report Type: Spontaneous
  Country: FR (occurrence: FR)
  Receive Date: 20180126
  Receipt Date: 20180126
  Transmission Date: 20180509
  Serious: Yes (Hospitalization)
  Sender: FDA-Public Use
  Company Number: FR-PFIZER INC-2018031922

PATIENT
  Age: 44 Year
  Sex: Female

DRUGS (3)
  1. THERALENE [Suspect]
     Active Substance: TRIMEPRAZINE
     Dosage: 4 DF, 1X/DAY
     Route: 048
     Dates: end: 20170706
  2. TERCIAN [Suspect]
     Active Substance: CYAMEMAZINE
     Dosage: 12.5 MG, ALTERNATE DAY
     Route: 048
     Dates: end: 20170708
  3. XANAX [Suspect]
     Active Substance: ALPRAZOLAM
     Dosage: 0.25 MG, ALTERNATE DAY
     Route: 048
     Dates: end: 20170706

REACTIONS (4)
  - Pneumonia aspiration [Recovering/Resolving]
  - Respiratory distress [Recovering/Resolving]
  - Choking [Recovering/Resolving]
  - Klebsiella sepsis [Recovering/Resolving]

NARRATIVE: CASE EVENT DATE: 20170702
